FAERS Safety Report 18114208 (Version 1)
Quarter: 2020Q3

REPORT INFORMATION
  Report Type: Spontaneous
  Country: CH (occurrence: CH)
  Receive Date: 20200805
  Receipt Date: 20200805
  Transmission Date: 20201103
  Serious: Yes (Life-Threatening, Hospitalization, Other)
  Sender: FDA-Public Use
  Company Number: CH-ASTRAZENECA-2020SE97581

PATIENT
  Age: 25 Year
  Sex: Female

DRUGS (7)
  1. SEQUASE [Concomitant]
     Active Substance: QUETIAPINE FUMARATE
     Dosage: 25 MG IN RESERVE ; AS NECESSARY
     Route: 048
  2. DAFALGAN [Suspect]
     Active Substance: ACETAMINOPHEN
     Dosage: 17 G IN TOTAL
     Route: 048
     Dates: start: 20180201, end: 20180201
  3. DAFALGAN [Concomitant]
     Active Substance: ACETAMINOPHEN
     Dosage: 1 G IN RESERVE ; AS NECESSARY
     Route: 048
  4. SEQUASE [Suspect]
     Active Substance: QUETIAPINE FUMARATE
     Dosage: 75 MG IN TOTAL
     Route: 048
     Dates: start: 20180201, end: 20180201
  5. TRITTICO [Concomitant]
     Active Substance: TRAZODONE HYDROCHLORIDE
     Route: 048
  6. FLUCTINE [Concomitant]
     Active Substance: FLUOXETINE HYDROCHLORIDE
     Route: 048
  7. IRFEN [Concomitant]
     Active Substance: IBUPROFEN
     Dosage: 600 MG IN RESERVE ; AS NECESSARY
     Route: 048

REACTIONS (2)
  - Abdominal pain [Recovered/Resolved]
  - Poisoning [Recovered/Resolved]

NARRATIVE: CASE EVENT DATE: 20180201
